FAERS Safety Report 10589310 (Version 3)
Quarter: 2014Q4

REPORT INFORMATION
  Report Type: Spontaneous
  Country: CA (occurrence: CA)
  Receive Date: 20141118
  Receipt Date: 20141202
  Transmission Date: 20150529
  Serious: Yes (Death)
  Sender: FDA-Public Use
  Company Number: CA-BEH-2014046643

PATIENT
  Age: 26 Year
  Sex: Male

DRUGS (3)
  1. ALBUMIN HUMAN 25% [Suspect]
     Active Substance: ALBUMIN (HUMAN)
     Dates: start: 20141020, end: 20141020
  2. ALBUMIN HUMAN 25% [Suspect]
     Active Substance: ALBUMIN (HUMAN)
     Dosage: FRACTION ADMINISTERED: 4/4
     Dates: start: 20141019, end: 20141019
  3. ALBUMIN HUMAN 25% [Suspect]
     Active Substance: ALBUMIN (HUMAN)
     Dosage: FRACTION ADMINISTERED: 4/4
     Dates: start: 20141019, end: 20141019

REACTIONS (1)
  - Pyrexia [Fatal]

NARRATIVE: CASE EVENT DATE: 20141020
